FAERS Safety Report 8135932-4 (Version None)
Quarter: 2012Q1

REPORT INFORMATION
  Report Type: 
  Country: None (occurrence: None)
  Receive Date: 20120214
  Receipt Date: 20120209
  Transmission Date: 20120608
  Serious: Yes (Hospitalization, Disabling, Other)
  Sender: FDA-Public Use
  Company Number: US-PFIZER INC-2010126742

PATIENT
  Sex: Male

DRUGS (7)
  1. CHANTIX [Suspect]
     Dosage: STARTER PACK CONTINUING MONTH PACKS
     Dates: start: 20100201, end: 20100201
  2. CIPROFLOXACIN [Concomitant]
     Indication: INFECTION
     Dosage: UNK
     Dates: start: 20060101, end: 20080101
  3. CHANTIX [Suspect]
     Dosage: STARTER PACK CONTINUING MONTH PACKS
     Dates: start: 20081201, end: 20090301
  4. ATIVAN [Concomitant]
     Indication: SLEEP DISORDER
  5. WELLBUTRIN [Concomitant]
     Indication: DEPRESSION
     Dosage: UNK
     Dates: start: 20060101
  6. CHANTIX [Suspect]
     Indication: SMOKING CESSATION THERAPY
     Dosage: STARTER PACK, CONTINUING MONTH PACKS
     Route: 048
     Dates: start: 20070601, end: 20080301
  7. ATIVAN [Concomitant]
     Indication: ANXIETY
     Dosage: UNK
     Dates: start: 20060101

REACTIONS (8)
  - INTENTIONAL OVERDOSE [None]
  - ANXIETY [None]
  - ATTENTION DEFICIT/HYPERACTIVITY DISORDER [None]
  - SUICIDE ATTEMPT [None]
  - BIPOLAR DISORDER [None]
  - MENTAL DISORDER [None]
  - DEPRESSION [None]
  - AGGRESSION [None]
